FAERS Safety Report 6109966-5 (Version None)
Quarter: 2009Q1

REPORT INFORMATION
  Report Type: 
  Country: None (occurrence: None)
  Receive Date: 20090310
  Receipt Date: 20081010
  Transmission Date: 20090719
  Serious: No
  Sender: FDA-Public Use
  Company Number: A0751334A

PATIENT
  Age: 77 Year
  Sex: Female

DRUGS (3)
  1. NICORETTE [Suspect]
     Dates: start: 19901011, end: 20071218
  2. NICORETTE [Suspect]
  3. NICORETTE (MINT) [Suspect]

REACTIONS (1)
  - INTENTIONAL DRUG MISUSE [None]
